FAERS Safety Report 9706296 (Version 2)
Quarter: 2013Q4

REPORT INFORMATION
  Report Type: Spontaneous
  Country: AU (occurrence: AU)
  Receive Date: 20131125
  Receipt Date: 20131224
  Transmission Date: 20140711
  Serious: Yes (Hospitalization)
  Sender: FDA-Public Use
  Company Number: AU-BIOGENIDEC-2013BI111190

PATIENT
  Age: 58 Year
  Sex: Female

DRUGS (2)
  1. AVONEX [Suspect]
     Indication: MULTIPLE SCLEROSIS
     Route: 030
     Dates: start: 20130416, end: 201311
  2. GILENYA [Concomitant]

REACTIONS (3)
  - Orthopaedic procedure [Recovered/Resolved]
  - Procedural pain [Not Recovered/Not Resolved]
  - Fear of injection [Unknown]
